FAERS Safety Report 6527748-7 (Version None)
Quarter: 2010Q1

REPORT INFORMATION
  Report Type: 
  Country: None (occurrence: None)
  Receive Date: 20100105
  Receipt Date: 20100105
  Transmission Date: 20100710
  Serious: No
  Sender: FDA-Public Use
  Company Number: None

PATIENT
  Age: 82 Year
  Sex: Female
  Weight: 93.8946 kg

DRUGS (1)
  1. NORVASC [Suspect]
     Dosage: 10 MG QD PO
     Route: 048
     Dates: start: 20090515, end: 20091214

REACTIONS (2)
  - COUGH [None]
  - NO THERAPEUTIC RESPONSE [None]
